FAERS Safety Report 23024550 (Version 3)
Quarter: 2023Q4

REPORT INFORMATION
  Report Type: Spontaneous
  Country: US (occurrence: US)
  Receive Date: 20231004
  Receipt Date: 20231205
  Transmission Date: 20240110
  Serious: No
  Sender: FDA-Public Use
  Company Number: US-SA-SAC20230928000982

PATIENT
  Age: 63 Year
  Sex: Female

DRUGS (10)
  1. DUPIXENT [Suspect]
     Active Substance: DUPILUMAB
     Indication: Asthma
     Dosage: 300 MG, QOW
     Route: 058
     Dates: start: 20230811
  2. DUPIXENT [Suspect]
     Active Substance: DUPILUMAB
     Indication: Nasal polyps
  3. DUPIXENT [Suspect]
     Active Substance: DUPILUMAB
     Indication: Eczema
  4. DESONIDE [Concomitant]
     Active Substance: DESONIDE
  5. FLUCONAZOLE [Concomitant]
     Active Substance: FLUCONAZOLE
  6. NUCALA [Concomitant]
     Active Substance: MEPOLIZUMAB
  7. OTEZLA [Concomitant]
     Active Substance: APREMILAST
     Dosage: 10/20/30
  8. XHANCE [Concomitant]
     Active Substance: FLUTICASONE PROPIONATE
  9. OTEZLA [Concomitant]
     Active Substance: APREMILAST
     Dosage: UNK
  10. AUGMENTIN [Concomitant]
     Active Substance: AMOXICILLIN\CLAVULANATE POTASSIUM

REACTIONS (7)
  - Sneezing [Not Recovered/Not Resolved]
  - Upper-airway cough syndrome [Unknown]
  - Sputum discoloured [Unknown]
  - Impaired quality of life [Unknown]
  - Injection site bruising [Not Recovered/Not Resolved]
  - Injection site pain [Not Recovered/Not Resolved]
  - Drug ineffective [Unknown]

NARRATIVE: CASE EVENT DATE: 20230101
